FAERS Safety Report 8555415-7 (Version None)
Quarter: 2012Q3

REPORT INFORMATION
  Report Type: 
  Country: None (occurrence: None)
  Receive Date: 20120731
  Receipt Date: 20120216
  Transmission Date: 20120928
  Serious: Yes (Hospitalization)
  Sender: FDA-Public Use
  Company Number: US-ASTRAZENECA-2011SE41047

PATIENT
  Age: 60 Year
  Sex: Female
  Weight: 70.3 kg

DRUGS (8)
  1. SEROQUEL [Suspect]
     Dosage: 300 MG AT NIGHT, 100 MG UPON WAKING AND ANOTHER 100 MG AT 5 PM
     Route: 048
  2. LITHIUM CARBONATE [Concomitant]
  3. OMEPRAZOLE [Concomitant]
  4. SEROQUEL [Suspect]
     Indication: BIPOLAR DISORDER
     Route: 048
     Dates: start: 20110101
  5. SEROQUEL [Suspect]
     Route: 048
  6. SCHARLIX [Concomitant]
     Dosage: 120 MG EVERY MEAL
  7. TOO MANY MEDICATIONS [Concomitant]
  8. METFORMIN HYDROCHLORIDE [Concomitant]

REACTIONS (9)
  - THROAT IRRITATION [None]
  - NASAL CONGESTION [None]
  - SLEEP DISORDER DUE TO GENERAL MEDICAL CONDITION, INSOMNIA TYPE [None]
  - DRUG DOSE OMISSION [None]
  - DIABETES MELLITUS [None]
  - DYSPHAGIA [None]
  - DYSPNOEA [None]
  - MANIA [None]
  - WRONG TECHNIQUE IN DRUG USAGE PROCESS [None]
